FAERS Safety Report 7399167-5 (Version None)
Quarter: 2011Q2

REPORT INFORMATION
  Report Type: 
  Country: None (occurrence: None)
  Receive Date: 20110407
  Receipt Date: 20110328
  Transmission Date: 20111010
  Serious: Yes (Other)
  Sender: FDA-Public Use
  Company Number: SG-SANOFI-AVENTIS-2011SA018563

PATIENT
  Age: 60 Year
  Sex: Female

DRUGS (1)
  1. TRIAMCINOLONE ACETONIDE [Suspect]
     Indication: VITRECTOMY
     Dosage: 40 MG/ML
     Route: 065

REACTIONS (4)
  - CORNEAL DISORDER [None]
  - VISUAL ACUITY REDUCED [None]
  - ANTERIOR CHAMBER CRYSTALLISATION [None]
  - CORNEAL OEDEMA [None]
